FAERS Safety Report 24720078 (Version 3)
Quarter: 2024Q4

REPORT INFORMATION
  Report Type: Report from Study
  Country: US (occurrence: US)
  Receive Date: 20241211
  Receipt Date: 20241219
  Transmission Date: 20250114
  Serious: Yes (Other)
  Sender: UCB
  Company Number: US-UCBSA-2024056058

PATIENT
  Sex: Male

DRUGS (7)
  1. FINTEPLA [Suspect]
     Active Substance: FENFLURAMINE
     Indication: Gene mutation
     Dosage: 3 MILLILITER, 2X/DAY (BID)
     Route: 048
     Dates: start: 20230211
  2. FINTEPLA [Suspect]
     Active Substance: FENFLURAMINE
     Indication: Off label use
     Dosage: 0.7 MILLIGRAM/KILOGRAM, DAILY
     Dates: start: 20230330
  3. FINTEPLA [Suspect]
     Active Substance: FENFLURAMINE
     Indication: Severe myoclonic epilepsy of infancy
     Dosage: 0.35 MILLIGRAM/KILOGRAM, DAILY
     Dates: start: 20230401
  4. FINTEPLA [Suspect]
     Active Substance: FENFLURAMINE
     Dosage: 0.3MG/KG/DAY
     Route: 048
     Dates: start: 20231102
  5. KEPPRA [Concomitant]
     Active Substance: LEVETIRACETAM
     Indication: Product used for unknown indication
     Dosage: 7 MILLILITER, 2X/DAY (BID) (SUSPENSION; ORAL USE)
     Route: 048
     Dates: start: 20220101
  6. TOPIRAMATE [Concomitant]
     Active Substance: TOPIRAMATE
     Indication: Product used for unknown indication
     Dosage: UNK
  7. EPIDIOLEX [Concomitant]
     Active Substance: CANNABIDIOL
     Indication: Product used for unknown indication
     Dosage: UNK

REACTIONS (4)
  - Aortic valve incompetence [Not Recovered/Not Resolved]
  - Gene mutation [Unknown]
  - Off label use [Unknown]
  - Aortic valve thickening [Unknown]

NARRATIVE: CASE EVENT DATE: 20240101
